FAERS Safety Report 6219465-8 (Version None)
Quarter: 2009Q2

REPORT INFORMATION
  Report Type: 
  Country: None (occurrence: None)
  Receive Date: 20090609
  Receipt Date: 20090529
  Transmission Date: 20091009
  Serious: Yes (Other)
  Sender: FDA-Public Use
  Company Number: PHEH2009US05491

PATIENT
  Sex: Male

DRUGS (1)
  1. GLEEVEC [Suspect]
     Dosage: 400 MG, UNK

REACTIONS (7)
  - DIARRHOEA [None]
  - FATIGUE [None]
  - NAUSEA [None]
  - RASH [None]
  - RENAL DISORDER [None]
  - SCAR [None]
  - SKIN DISCOLOURATION [None]
